FAERS Safety Report 10310468 (Version 1)
Quarter: 2014Q3

REPORT INFORMATION
  Report Type: Spontaneous
  Country: US (occurrence: None)
  Receive Date: 20140715
  Receipt Date: 20140715
  Transmission Date: 20150326
  Serious: Yes (Other)
  Sender: FDA-Public Use
  Company Number: AUR-APL-2014-07345

PATIENT
  Age: 73 Year
  Sex: Female
  Weight: 86.2 kg

DRUGS (3)
  1. LISINOPRIL (LISINOPRIL) [Suspect]
     Active Substance: LISINOPRIL
     Indication: HYPERTENSION
  2. NEXIUM /01479302/ (ESOMEPRAZOLE MAGNESIUM) [Concomitant]
  3. MELOXICAM (MELOXICAM) [Concomitant]
     Active Substance: MELOXICAM

REACTIONS (2)
  - Pharyngeal oedema [None]
  - Weight increased [None]
